FAERS Safety Report 23090477 (Version 1)
Quarter: 2023Q4

REPORT INFORMATION
  Report Type: Spontaneous
  Country: US (occurrence: None)
  Receive Date: 20231019
  Receipt Date: 20231019
  Transmission Date: 20240110
  Serious: Yes (Life-Threatening, Hospitalization, Disabling, Other)
  Sender: FDA-Public Use
  Company Number: None

PATIENT
  Age: 50 Year
  Sex: Female
  Weight: 78.47 kg

DRUGS (8)
  1. CIPROFLOXACIN [Suspect]
     Active Substance: CIPROFLOXACIN
     Indication: Urinary tract infection
     Dates: start: 2018, end: 2018
  2. C-Pap Trulicity [Concomitant]
  3. METFORMIN [Concomitant]
     Active Substance: METFORMIN HYDROCHLORIDE
  4. METOPROLOL [Concomitant]
     Active Substance: METOPROLOL
  5. DEPAKOTE [Concomitant]
     Active Substance: DIVALPROEX SODIUM
  6. DILTIAZEM [Concomitant]
     Active Substance: DILTIAZEM
  7. CINNAMON [Concomitant]
     Active Substance: CINNAMON
  8. CRANBERRY [Concomitant]
     Active Substance: CRANBERRY

REACTIONS (2)
  - Rhabdomyolysis [None]
  - Blood creatine phosphokinase increased [None]
